FAERS Safety Report 13839006 (Version 1)
Quarter: 2017Q3

REPORT INFORMATION
  Report Type: Report from Study
  Country: VE (occurrence: VE)
  Receive Date: 20170807
  Receipt Date: 20170807
  Transmission Date: 20171127
  Serious: Yes (Death, Other)
  Sender: FDA-Public Use
  Company Number: PHHY2017VE115576

PATIENT
  Age: 89 Year
  Sex: Female

DRUGS (1)
  1. TASIGNA [Suspect]
     Active Substance: NILOTINIB
     Indication: CHRONIC MYELOID LEUKAEMIA
     Dosage: 400 MG, QD
     Route: 048
     Dates: start: 20141202, end: 201510

REACTIONS (3)
  - Platelet count increased [Unknown]
  - Death [Fatal]
  - Fall [Unknown]

NARRATIVE: CASE EVENT DATE: 20151029
